FAERS Safety Report 12884653 (Version 1)
Quarter: 2016Q4

REPORT INFORMATION
  Report Type: Spontaneous
  Country: US (occurrence: US)
  Receive Date: 20161025
  Receipt Date: 20161025
  Transmission Date: 20170207
  Serious: No
  Sender: FDA-Public Use
  Company Number: None

PATIENT
  Age: 57 Year
  Sex: Female
  Weight: 81 kg

DRUGS (2)
  1. JUBLIA [Suspect]
     Active Substance: EFINACONAZOLE
     Indication: ONYCHOMYCOSIS
     Route: 061
     Dates: start: 20150822, end: 20161021
  2. XANAX [Concomitant]
     Active Substance: ALPRAZOLAM

REACTIONS (5)
  - Local swelling [None]
  - Wound secretion [None]
  - Gait disturbance [None]
  - Erythema [None]
  - Blister [None]

NARRATIVE: CASE EVENT DATE: 20160901
